FAERS Safety Report 19229222 (Version 1)
Quarter: 2021Q2

REPORT INFORMATION
  Report Type: Spontaneous
  Country: US (occurrence: US)
  Receive Date: 20210506
  Receipt Date: 20210506
  Transmission Date: 20210717
  Serious: No
  Sender: FDA-Public Use
  Company Number: US-SA-2021SA148093

PATIENT
  Age: 21 Year
  Sex: Female

DRUGS (2)
  1. BENADRYL [Suspect]
     Active Substance: DIPHENHYDRAMINE HYDROCHLORIDE
  2. DUPIXENT [Suspect]
     Active Substance: DUPILUMAB
     Indication: DERMATITIS
     Route: 058
     Dates: start: 20210204

REACTIONS (4)
  - Pruritus [Recovered/Resolved]
  - Dermatitis [Recovered/Resolved]
  - Product use in unapproved indication [Unknown]
  - Sleep disorder [Recovered/Resolved]
